FAERS Safety Report 7009264-1 (Version None)
Quarter: 2010Q3

REPORT INFORMATION
  Report Type: 
  Country: None (occurrence: None)
  Receive Date: 20100923
  Receipt Date: 20100910
  Transmission Date: 20110219
  Serious: Yes (Hospitalization)
  Sender: FDA-Public Use
  Company Number: US-SANOFI-AVENTIS-2010SA056777

PATIENT
  Sex: Female
  Weight: 6.5 kg

DRUGS (17)
  1. ARAVA [Suspect]
     Dosage: DURATION- APPROXIMATELY 3-4 WEEKS.
     Route: 048
  2. WARFARIN SODIUM [Concomitant]
  3. PLAQUENIL [Concomitant]
  4. FOLIC ACID [Concomitant]
  5. FERROUS SULFATE [Concomitant]
  6. VIOXX [Concomitant]
  7. PREVACID [Concomitant]
  8. LEXAPRO [Concomitant]
  9. POTASSIUM CHLORIDE [Concomitant]
  10. ACTONEL [Concomitant]
     Route: 048
  11. AMLODIPINE BESYLATE [Concomitant]
  12. LOPRESSOR [Concomitant]
  13. VALTREX [Concomitant]
  14. DURAGESIC-100 [Concomitant]
     Dosage: PATCH EVERY 3 DAYS.
  15. PREDNISONE [Concomitant]
  16. MULTI-VITAMINS [Concomitant]
  17. CALCIUM [Concomitant]

REACTIONS (6)
  - HEPATOTOXICITY [None]
  - HYPOPHAGIA [None]
  - MALAISE [None]
  - MYALGIA [None]
  - NAUSEA [None]
  - VOMITING [None]
